FAERS Safety Report 6056706-4 (Version None)
Quarter: 2009Q1

REPORT INFORMATION
  Report Type: 
  Country: None (occurrence: None)
  Receive Date: 20090129
  Receipt Date: 20090123
  Transmission Date: 20090719
  Serious: Yes (Other)
  Sender: FDA-Public Use
  Company Number: FR-AVENTIS-200910266FR

PATIENT
  Age: 76 Year
  Sex: Male

DRUGS (6)
  1. LOVENOX [Suspect]
     Dates: start: 20080902
  2. PLAVIX [Suspect]
     Route: 048
     Dates: start: 20080902, end: 20080917
  3. OMEPRAZOLE [Concomitant]
     Route: 048
     Dates: start: 20080908, end: 20080912
  4. COVERSYL                           /00790701/ [Concomitant]
     Route: 048
     Dates: start: 20080905
  5. CRESTOR [Concomitant]
     Route: 048
  6. TEGRETOL [Concomitant]
     Dates: start: 20080701, end: 20080905

REACTIONS (1)
  - NEUTROPENIA [None]
